FAERS Safety Report 6793506-1 (Version None)
Quarter: 2010Q2

REPORT INFORMATION
  Report Type: 
  Country: None (occurrence: None)
  Receive Date: 20100624
  Receipt Date: 20100510
  Transmission Date: 20101027
  Serious: Yes (Other)
  Sender: FDA-Public Use
  Company Number: US-MYLANLABS-2010S1006793

PATIENT
  Age: 27 Year
  Sex: Male

DRUGS (7)
  1. CLOZAPINE [Suspect]
     Indication: SCHIZOPHRENIA
     Route: 048
     Dates: end: 20100401
  2. COGENTIN [Concomitant]
     Indication: PARKINSON'S DISEASE
     Route: 048
  3. DEPAKOTE ER [Concomitant]
     Indication: SCHIZOPHRENIA
     Route: 048
  4. FLUPHENAZINE HCL [Concomitant]
     Indication: SCHIZOPHRENIA
     Route: 048
  5. ZESTRIL [Concomitant]
     Indication: HYPERTENSION
     Route: 048
  6. ZYPREXA [Concomitant]
     Indication: SCHIZOPHRENIA
     Route: 048
  7. PEPCID [Concomitant]
     Indication: GASTROOESOPHAGEAL REFLUX DISEASE
     Route: 048

REACTIONS (1)
  - GRANULOCYTOPENIA [None]
